FAERS Safety Report 8321646-4 (Version None)
Quarter: 2012Q2

REPORT INFORMATION
  Report Type: 
  Country: None (occurrence: None)
  Receive Date: 20120430
  Receipt Date: 20120425
  Transmission Date: 20120825
  Serious: No
  Sender: FDA-Public Use
  Company Number: US-BAYER-2012-040817

PATIENT
  Sex: Female

DRUGS (1)
  1. AVELOX [Suspect]
     Indication: SINUSITIS

REACTIONS (2)
  - GASTROOESOPHAGEAL REFLUX DISEASE [None]
  - OROPHARYNGEAL PAIN [None]
